FAERS Safety Report 19577663 (Version 1)
Quarter: 2021Q3

REPORT INFORMATION
  Report Type: Other
  Country: IT (occurrence: IT)
  Receive Date: 20210719
  Receipt Date: 20210719
  Transmission Date: 20211014
  Serious: Yes (Other)
  Sender: FDA-Public Use
  Company Number: IT-ROCHE-2871337

PATIENT

DRUGS (4)
  1. CETUXIMAB. [Suspect]
     Active Substance: CETUXIMAB
     Indication: RECTAL CANCER
     Route: 065
  2. FOLFOXIRI [Suspect]
     Active Substance: FLUOROURACIL\IRINOTECAN\LEUCOVORIN\OXALIPLATIN
     Indication: RECTAL CANCER
     Route: 065
  3. PANITUMUMAB [Suspect]
     Active Substance: PANITUMUMAB
     Indication: RECTAL CANCER
     Route: 065
  4. BEVACIZUMAB. [Suspect]
     Active Substance: BEVACIZUMAB
     Indication: RECTAL CANCER
     Route: 065

REACTIONS (8)
  - Platelet count decreased [Unknown]
  - Diarrhoea [Unknown]
  - Anaemia [Unknown]
  - Vomiting [Unknown]
  - Neutropenia [Unknown]
  - Hyperkalaemia [Unknown]
  - Stomatitis [Unknown]
  - Nausea [Unknown]
